FAERS Safety Report 4865073-0 (Version None)
Quarter: 2005Q4

REPORT INFORMATION
  Report Type: 
  Country: None (occurrence: None)
  Receive Date: 20051220
  Receipt Date: 20051220
  Transmission Date: 20060501
  Serious: Yes (Other)
  Sender: FDA-Public Use
  Company Number: None

PATIENT
  Age: 61 Year
  Sex: Female

DRUGS (1)
  1. SINEMET ER CARBIDOPA/LEVO ER TABS APO132- 50/200 [Suspect]
     Dosage: 2 TABS EVERY 5 HOURS
     Dates: start: 20051129

REACTIONS (4)
  - BRUXISM [None]
  - DYSKINESIA [None]
  - TINNITUS [None]
  - VOMITING [None]
